FAERS Safety Report 17599615 (Version 1)
Quarter: 2020Q1

REPORT INFORMATION
  Report Type: Spontaneous
  Country: US (occurrence: US)
  Receive Date: 20200330
  Receipt Date: 20200330
  Transmission Date: 20200409
  Serious: No
  Sender: FDA-Public Use
  Company Number: US-KYOWAKIRIN-2020BKK004723

PATIENT

DRUGS (2)
  1. CRYSVITA [Suspect]
     Active Substance: BUROSUMAB-TWZA
     Indication: HEREDITARY HYPOPHOSPHATAEMIC RICKETS
     Dosage: 60 MG (30 MG TWICE), 1X/MONTH
     Route: 065
  2. CRYSVITA [Suspect]
     Active Substance: BUROSUMAB-TWZA
     Dosage: UNK UNK, 1X/4 WEEKS
     Route: 065

REACTIONS (5)
  - Anosmia [Unknown]
  - Cough [Unknown]
  - Corona virus infection [Unknown]
  - Pyrexia [Unknown]
  - Ageusia [Unknown]

NARRATIVE: CASE EVENT DATE: 202003
